FAERS Safety Report 8622617-0 (Version None)
Quarter: 2012Q3

REPORT INFORMATION
  Report Type: 
  Country: None (occurrence: None)
  Receive Date: 20120827
  Receipt Date: 20120821
  Transmission Date: 20120928
  Serious: Yes (Other)
  Sender: FDA-Public Use
  Company Number: CA-JNJFOC-20120806999

PATIENT
  Sex: Male

DRUGS (5)
  1. CYMBALTA [Concomitant]
  2. TYLENOL [Concomitant]
  3. METHOTREXATE [Concomitant]
  4. CELEBREX [Concomitant]
  5. SIMPONI [Suspect]
     Indication: ARTHRITIS
     Dates: start: 20100401, end: 20111101

REACTIONS (3)
  - TREMOR [None]
  - HEADACHE [None]
  - ARTHRALGIA [None]
